FAERS Safety Report 7604803-1 (Version None)
Quarter: 2011Q3

REPORT INFORMATION
  Report Type: 
  Country: None (occurrence: None)
  Receive Date: 20110712
  Receipt Date: 20110705
  Transmission Date: 20111222
  Serious: Yes (Other)
  Sender: FDA-Public Use
  Company Number: IT-ALLERGAN-1109151US

PATIENT
  Age: 48 Year
  Sex: Female

DRUGS (3)
  1. BOTULINUM TOXIN TYPE A [Suspect]
     Dosage: 400 UNITS, SINGLE
  2. BOTULINUM TOXIN TYPE A [Suspect]
     Indication: MUSCLE SPASTICITY
     Dosage: 600 UNITS, SINGLE
  3. BOTULINUM TOXIN TYPE A [Suspect]
     Dosage: 400 UNITS, SINGLE

REACTIONS (1)
  - BOTULISM [None]
